FAERS Safety Report 5760957-3 (Version None)
Quarter: 2008Q2

REPORT INFORMATION
  Report Type: 
  Country: None (occurrence: None)
  Receive Date: 20080606
  Receipt Date: 20070524
  Transmission Date: 20081010
  Serious: No
  Sender: FDA-Public Use
  Company Number: US-ASTRAZENECA-2007UW08146

PATIENT
  Age: 70 Year
  Sex: Male
  Weight: 111.1 kg

DRUGS (17)
  1. PRILOSEC [Suspect]
     Indication: GASTROOESOPHAGEAL REFLUX DISEASE
     Route: 048
  2. PRILOSEC [Suspect]
     Indication: GASTRIC DISORDER
     Route: 048
  3. PRILOSEC [Suspect]
     Route: 048
  4. PRILOSEC [Suspect]
     Route: 048
  5. QUINARETIC [Concomitant]
  6. OSTEOMETRIC [Concomitant]
  7. VITAMIN E [Concomitant]
  8. OSTEO BI-FLEX [Concomitant]
  9. CENTRUM SILVER [Concomitant]
  10. NIACIN [Concomitant]
  11. FLOMAX [Concomitant]
  12. AVODART [Concomitant]
  13. RANITIDINE [Concomitant]
  14. SPIRONOLACTONE [Concomitant]
  15. ALLEGRA [Concomitant]
  16. VITAMIN B-12 [Concomitant]
  17. POTASSIUM CHLORIDE [Concomitant]

REACTIONS (2)
  - BONE DENSITY DECREASED [None]
  - OSTEOPOROSIS [None]
